FAERS Safety Report 18315629 (Version 9)
Quarter: 2021Q2

REPORT INFORMATION
  Report Type: Report from Study
  Country: US (occurrence: US)
  Receive Date: 20200926
  Receipt Date: 20210616
  Transmission Date: 20210717
  Serious: Yes (Other)
  Sender: FDA-Public Use
  Company Number: NVSC2020US256800

PATIENT
  Age: 71 Year
  Sex: Female

DRUGS (3)
  1. ENTRESTO [Suspect]
     Active Substance: SACUBITRIL\VALSARTAN
     Dosage: 200 MG (97/103 MG), BID
     Route: 048
  2. ENTRESTO [Suspect]
     Active Substance: SACUBITRIL\VALSARTAN
     Indication: PRODUCT USED FOR UNKNOWN INDICATION
     Dosage: 100 MG (49/51 MG), BID
     Route: 048
     Dates: start: 202007
  3. SPIRONOLACTONE. [Concomitant]
     Active Substance: SPIRONOLACTONE
     Indication: PRODUCT USED FOR UNKNOWN INDICATION
     Dosage: UNK UNK, BID
     Route: 065

REACTIONS (17)
  - Balance disorder [Not Recovered/Not Resolved]
  - Weight abnormal [Unknown]
  - Facial bones fracture [Unknown]
  - Depression [Not Recovered/Not Resolved]
  - Fatigue [Not Recovered/Not Resolved]
  - Tremor [Not Recovered/Not Resolved]
  - Arthralgia [Not Recovered/Not Resolved]
  - Fall [Unknown]
  - Hypertension [Recovering/Resolving]
  - Anxiety [Unknown]
  - Psychiatric symptom [Recovering/Resolving]
  - Boredom [Recovering/Resolving]
  - Pelvic pain [Not Recovered/Not Resolved]
  - Cardiac failure [Unknown]
  - Confusional state [Not Recovered/Not Resolved]
  - Back pain [Recovering/Resolving]
  - Tooth fracture [Unknown]

NARRATIVE: CASE EVENT DATE: 202007
